FAERS Safety Report 12726300 (Version 1)
Quarter: 2016Q3

REPORT INFORMATION
  Report Type: Spontaneous
  Country: FR (occurrence: FR)
  Receive Date: 20160908
  Receipt Date: 20160908
  Transmission Date: 20161109
  Serious: Yes (Death)
  Sender: FDA-Public Use
  Company Number: FR-B. BRAUN MEDICAL INC.-1057181

PATIENT
  Age: 92 Year
  Sex: Male

DRUGS (29)
  1. EPINITRIL ( TRINITRINE) [Concomitant]
  2. SODIUM CHLORIDE. [Concomitant]
     Active Substance: SODIUM CHLORIDE
  3. TRIATEC [Concomitant]
     Active Substance: RAMIPRIL
     Dates: start: 20160805, end: 20160809
  4. OXAZEPAM. [Suspect]
     Active Substance: OXAZEPAM
     Dates: end: 20160809
  5. TRAVATAN (TRAVOPROST) [Concomitant]
  6. LASILIX( FUROSEMIDE) [Concomitant]
     Route: 042
  7. IPRATROPIUM [Concomitant]
     Active Substance: IPRATROPIUM
  8. ELISOR( PRAVASTATINE SODIUM) [Concomitant]
     Dates: start: 20160809
  9. LEVOTHYROX [Concomitant]
     Active Substance: LEVOTHYROXINE
  10. ATHYMIL ( MIANSERINE HYDROCHLORIDE) [Concomitant]
     Dates: end: 20160809
  11. IKOREL [Concomitant]
     Active Substance: NICORANDIL
     Dates: start: 20160805, end: 20160809
  12. BIONOLYTE (GLUCOSE MONOHYDRATE, POTASSIUM CHLORIDE, [Concomitant]
     Dates: start: 20160809
  13. PREVISCAN(FLUINDIONE) [Suspect]
     Active Substance: FLUINDIONE
     Dates: end: 20160809
  14. VITABACT [Concomitant]
     Active Substance: PICLOXYDINE DIHYDROCHLORIDE
  15. PARACETAMOL [Concomitant]
     Active Substance: ACETAMINOPHEN
     Route: 042
     Dates: start: 20160805, end: 20160806
  16. DIFFU-K (POTASSIUM CHLORIDE) [Concomitant]
     Active Substance: POTASSIUM CHLORIDE
  17. CORDARONE [Concomitant]
     Active Substance: AMIODARONE HYDROCHLORIDE
  18. VITAMIN K [Concomitant]
     Active Substance: PHYTONADIONE
     Dates: start: 20160809
  19. TRUSOPT [Concomitant]
     Active Substance: DORZOLAMIDE HYDROCHLORIDE
  20. OXYGEN. [Concomitant]
     Active Substance: OXYGEN
  21. AMOXICILLIN/CLAVULANIC ACID [Suspect]
     Active Substance: AMOXICILLIN\CLAVULANIC ACID
     Dates: start: 20160808
  22. ATROVENT [Concomitant]
     Active Substance: IPRATROPIUM BROMIDE
     Dates: start: 20160809
  23. PRAVASTATIN SODIUM. [Concomitant]
     Active Substance: PRAVASTATIN SODIUM
  24. CEFTRIAXONE. [Suspect]
     Active Substance: CEFTRIAXONE
     Route: 042
     Dates: start: 20160805, end: 20160810
  25. AMOXICILLIN/CLAVULANIC ACID [Suspect]
     Active Substance: AMOXICILLIN\CLAVULANIC ACID
     Dates: start: 20160805, end: 20160808
  26. METRONIDAZOLE. [Suspect]
     Active Substance: METRONIDAZOLE
     Dates: start: 20160809, end: 20160810
  27. SALBUTAMOL [Concomitant]
     Active Substance: ALBUTEROL
  28. MOLSIDOMINE [Concomitant]
     Active Substance: MOLSIDOMINE
     Dates: end: 20160809
  29. IMOVANE [Concomitant]
     Active Substance: ZOPICLONE

REACTIONS (5)
  - Coagulation factor V level decreased [None]
  - Hepatocellular injury [None]
  - Cholestasis [None]
  - Cardio-respiratory arrest [None]
  - International normalised ratio increased [None]
